FAERS Safety Report 10306169 (Version 2)
Quarter: 2014Q3

REPORT INFORMATION
  Report Type: Spontaneous
  Country: DE (occurrence: DE)
  Receive Date: 20140715
  Receipt Date: 20140730
  Transmission Date: 20150326
  Serious: Yes (Death, Other)
  Sender: FDA-Public Use
  Company Number: DE-BRISTOL-MYERS SQUIBB COMPANY-21189717

PATIENT
  Age: 76 Year
  Sex: Female
  Weight: 75 kg

DRUGS (6)
  1. METOPROLOL [Concomitant]
     Active Substance: METOPROLOL
  2. EPLERENONE. [Concomitant]
     Active Substance: EPLERENONE
  3. FENOTEROL [Concomitant]
     Active Substance: FENOTEROL
  4. PANTOPRAZOLE [Concomitant]
     Active Substance: PANTOPRAZOLE SODIUM
  5. ELIQUIS [Suspect]
     Active Substance: APIXABAN
     Indication: CEREBROVASCULAR ACCIDENT PROPHYLAXIS
     Dosage: LATER ON SHE RECEIVED 5MG TAB TWICE DAILY
     Dates: start: 20140603
  6. TORASEMIDE [Concomitant]
     Active Substance: TORSEMIDE

REACTIONS (2)
  - Haemorrhage [Fatal]
  - Haemoptysis [Unknown]

NARRATIVE: CASE EVENT DATE: 20140630
